FAERS Safety Report 19057954 (Version 2)
Quarter: 2023Q2

REPORT INFORMATION
  Report Type: Report from Study
  Country: CH (occurrence: CH)
  Receive Date: 20210324
  Receipt Date: 20230426
  Transmission Date: 20230721
  Serious: Yes (Life-Threatening, Hospitalization, Other)
  Sender: FDA-Public Use
  Company Number: CH-BAXALTA-2016BLT001641

PATIENT
  Age: 70 Year
  Sex: Male
  Weight: 85 kg

DRUGS (51)
  1. ADVATE [Suspect]
     Active Substance: ANTIHEMOPHILIC FACTOR, HUMAN RECOMBINANT
     Indication: Factor VIII deficiency
     Dosage: UNK
     Route: 042
     Dates: start: 20120919
  2. ADVATE [Suspect]
     Active Substance: ANTIHEMOPHILIC FACTOR, HUMAN RECOMBINANT
     Indication: Factor VIII deficiency
     Dosage: UNK
     Route: 042
     Dates: start: 20120919
  3. ADVATE [Suspect]
     Active Substance: ANTIHEMOPHILIC FACTOR, HUMAN RECOMBINANT
     Indication: Factor VIII deficiency
     Dosage: UNK
     Route: 042
     Dates: start: 20120919
  4. ADVATE [Suspect]
     Active Substance: ANTIHEMOPHILIC FACTOR, HUMAN RECOMBINANT
     Dosage: 2000 INTERNATIONAL UNIT, QD
     Route: 042
     Dates: start: 20150415
  5. ADVATE [Suspect]
     Active Substance: ANTIHEMOPHILIC FACTOR, HUMAN RECOMBINANT
     Dosage: 2000 INTERNATIONAL UNIT, QD
     Route: 042
     Dates: start: 20150415
  6. ADVATE [Suspect]
     Active Substance: ANTIHEMOPHILIC FACTOR, HUMAN RECOMBINANT
     Dosage: 2000 INTERNATIONAL UNIT, QD
     Route: 042
     Dates: start: 20150415
  7. ADVATE [Suspect]
     Active Substance: ANTIHEMOPHILIC FACTOR, HUMAN RECOMBINANT
     Dosage: 2000 INTERNATIONAL UNIT, QD
     Route: 042
     Dates: start: 20150512, end: 20150512
  8. ADVATE [Suspect]
     Active Substance: ANTIHEMOPHILIC FACTOR, HUMAN RECOMBINANT
     Dosage: 2000 INTERNATIONAL UNIT, QD
     Route: 042
     Dates: start: 20150512, end: 20150512
  9. ADVATE [Suspect]
     Active Substance: ANTIHEMOPHILIC FACTOR, HUMAN RECOMBINANT
     Dosage: 2000 INTERNATIONAL UNIT, QD
     Route: 042
     Dates: start: 20150512, end: 20150512
  10. ADVATE [Suspect]
     Active Substance: ANTIHEMOPHILIC FACTOR, HUMAN RECOMBINANT
     Dosage: 2000 INTERNATIONAL UNIT, QD
     Route: 042
     Dates: start: 20150512, end: 20150512
  11. ADVATE [Suspect]
     Active Substance: ANTIHEMOPHILIC FACTOR, HUMAN RECOMBINANT
     Dosage: 2000 INTERNATIONAL UNIT, QD
     Route: 042
     Dates: start: 20150512, end: 20150512
  12. ADVATE [Suspect]
     Active Substance: ANTIHEMOPHILIC FACTOR, HUMAN RECOMBINANT
     Dosage: 2000 INTERNATIONAL UNIT, QD
     Route: 042
     Dates: start: 20150512, end: 20150512
  13. ADVATE [Suspect]
     Active Substance: ANTIHEMOPHILIC FACTOR, HUMAN RECOMBINANT
     Dosage: 2000 INTERNATIONAL UNIT, PRN
     Route: 042
  14. ADVATE [Suspect]
     Active Substance: ANTIHEMOPHILIC FACTOR, HUMAN RECOMBINANT
     Dosage: 2000 INTERNATIONAL UNIT, PRN
     Route: 042
  15. ADVATE [Suspect]
     Active Substance: ANTIHEMOPHILIC FACTOR, HUMAN RECOMBINANT
     Dosage: 2000 INTERNATIONAL UNIT, PRN
     Route: 042
  16. ADVATE [Suspect]
     Active Substance: ANTIHEMOPHILIC FACTOR, HUMAN RECOMBINANT
     Dosage: 4000 INTERNATIONAL UNIT
     Route: 042
     Dates: start: 20150512, end: 20150530
  17. ADVATE [Suspect]
     Active Substance: ANTIHEMOPHILIC FACTOR, HUMAN RECOMBINANT
     Dosage: 4000 INTERNATIONAL UNIT
     Route: 042
     Dates: start: 20150512, end: 20150530
  18. ADVATE [Suspect]
     Active Substance: ANTIHEMOPHILIC FACTOR, HUMAN RECOMBINANT
     Dosage: 4000 INTERNATIONAL UNIT
     Route: 042
     Dates: start: 20150512, end: 20150530
  19. ADVATE [Suspect]
     Active Substance: ANTIHEMOPHILIC FACTOR, HUMAN RECOMBINANT
     Dosage: UNK
     Route: 042
     Dates: start: 20201202
  20. ADVATE [Suspect]
     Active Substance: ANTIHEMOPHILIC FACTOR, HUMAN RECOMBINANT
     Dosage: UNK
     Route: 042
     Dates: start: 20201202
  21. ADVATE [Suspect]
     Active Substance: ANTIHEMOPHILIC FACTOR, HUMAN RECOMBINANT
     Dosage: UNK
     Route: 042
     Dates: start: 20201202
  22. ADVATE [Suspect]
     Active Substance: ANTIHEMOPHILIC FACTOR, HUMAN RECOMBINANT
     Dosage: 3000 INTERNATIONAL UNIT
     Route: 042
  23. ADVATE [Suspect]
     Active Substance: ANTIHEMOPHILIC FACTOR, HUMAN RECOMBINANT
     Dosage: 3000 INTERNATIONAL UNIT
     Route: 042
  24. ADVATE [Suspect]
     Active Substance: ANTIHEMOPHILIC FACTOR, HUMAN RECOMBINANT
     Dosage: 3000 INTERNATIONAL UNIT
     Route: 042
  25. CARVEDILOL [Concomitant]
     Active Substance: CARVEDILOL
     Indication: Hypertension
     Dosage: 25 MILLIGRAM, QID
     Route: 065
  26. CARVEDILOL [Concomitant]
     Active Substance: CARVEDILOL
     Dosage: 50 MILLIGRAM, QD
     Dates: end: 20210302
  27. DAFALGAN [Concomitant]
     Active Substance: ACETAMINOPHEN
     Indication: Headache
     Dosage: 1 G, AS NEEDED
     Route: 065
     Dates: start: 2014, end: 20160321
  28. DAFALGAN [Concomitant]
     Active Substance: ACETAMINOPHEN
     Dosage: UNK
     Dates: start: 20160321
  29. DULCOLAX NOS [Concomitant]
     Active Substance: BISACODYL OR DOCUSATE SODIUM
     Indication: Constipation
     Dosage: UNK UNK, AS NEEDED
     Route: 065
     Dates: start: 2013
  30. VASCORD [Concomitant]
     Indication: Hypertension
     Dosage: UNK, QD
     Dates: start: 20150323
  31. VASCORD [Concomitant]
     Dosage: UNK
     Dates: start: 20190204, end: 20191104
  32. AMLODIPINE BESYLATE [Concomitant]
     Active Substance: AMLODIPINE BESYLATE
     Indication: Hypertension
     Dosage: 5 MILLIGRAM, QD
     Route: 065
     Dates: start: 20120314, end: 20150323
  33. CANDESARTAN [Concomitant]
     Active Substance: CANDESARTAN
     Indication: Hypertension
     Dosage: 16 MILLIGRAM, QD
     Route: 065
     Dates: start: 20200217, end: 20200322
  34. CYKLOKAPRON PFIZER [Concomitant]
     Indication: Epistaxis
     Dosage: 5 PERCENT, PRN
     Route: 065
     Dates: start: 20201008
  35. MEDROL COMP [Concomitant]
     Indication: Arthropathy
     Dosage: UNK
     Route: 065
     Dates: start: 20171025, end: 20171025
  36. DIAMOX SEQUELS [Concomitant]
     Active Substance: ACETAZOLAMIDE
     Indication: Cataract operation
     Dosage: 250 MILLIGRAM, BID
     Route: 065
     Dates: start: 20200211, end: 20200211
  37. DIAMOX SEQUELS [Concomitant]
     Active Substance: ACETAZOLAMIDE
     Dosage: 250 MILLIGRAM, BID
     Route: 065
     Dates: start: 20200225, end: 20200225
  38. ENALAPRIL MALEATE [Concomitant]
     Active Substance: ENALAPRIL MALEATE
     Indication: Hypertension
     Dosage: 25 MILLIGRAM, BID
     Route: 065
     Dates: start: 2011, end: 20150323
  39. POTASSIUM BICARBONATE\POTASSIUM CITRATE [Concomitant]
     Active Substance: POTASSIUM BICARBONATE\POTASSIUM CITRATE
     Indication: Hypocalcaemia
     Dosage: 30 MILLIMOLE, QD
     Dates: start: 20150814, end: 20150817
  40. LACRI VISION [Concomitant]
     Indication: Cataract
     Dosage: UNK
     Route: 065
     Dates: start: 20200211
  41. MIRTAZAPINE [Concomitant]
     Active Substance: MIRTAZAPINE
     Indication: Headache
     Dosage: 30 MILLIGRAM, QD
     Route: 065
     Dates: end: 20191104
  42. AMOXICILLIN\CLARITHROMYCIN\ESOMEPRAZOLE [Concomitant]
     Active Substance: AMOXICILLIN\CLARITHROMYCIN\ESOMEPRAZOLE
     Indication: Abdominal pain upper
     Dosage: 40 MILLIGRAM, BID
     Route: 065
     Dates: start: 202003
  43. ACETAMINOPHEN\CAFFEINE\PROPYPHENAZONE [Concomitant]
     Active Substance: ACETAMINOPHEN\CAFFEINE\PROPYPHENAZONE
     Indication: Pain
     Dosage: 500 MILLIGRAM, PRN
     Route: 065
     Dates: start: 20200803, end: 20200928
  44. PRED FORTE [Concomitant]
     Active Substance: PREDNISOLONE ACETATE
     Indication: Cataract
     Dosage: 1 PERCENT, TID
     Route: 065
     Dates: start: 20200225, end: 20200302
  45. REMERON [Concomitant]
     Active Substance: MIRTAZAPINE
     Indication: Headache
     Dosage: 7.5 MILLIGRAM, QD
     Route: 065
     Dates: start: 20161130
  46. ROPIVACAINE [Concomitant]
     Active Substance: ROPIVACAINE
     Indication: Arthropathy
     Dosage: UNK
     Route: 065
     Dates: start: 20171025, end: 20171025
  47. NALOXONE HYDROCHLORIDE\OXYCODONE HYDROCHLORIDE [Concomitant]
     Active Substance: NALOXONE HYDROCHLORIDE\OXYCODONE HYDROCHLORIDE
     Indication: Pain
     Dosage: 10/5 MILLIGRAM
     Route: 065
     Dates: start: 20190506, end: 201909
  48. TOBRADEX ST [Concomitant]
     Active Substance: DEXAMETHASONE\TOBRAMYCIN
     Indication: Cataract
     Dosage: 3 MILLIGRAM, 5 TIMES PER DAY
     Route: 065
     Dates: start: 20200211, end: 20200217
  49. TRAMADOL [Concomitant]
     Active Substance: TRAMADOL
     Indication: Pain
     Dosage: 100 MG/ML, AS REQUIRED
     Route: 065
     Dates: start: 20200928
  50. BROMFENAC SODIUM [Concomitant]
     Active Substance: BROMFENAC SODIUM
     Indication: Cataract
     Dosage: 0.9 MG/ML DROPS, TWICE PER DAY
     Route: 065
     Dates: start: 20200211, end: 20200224
  51. ZOLPIDEM [Concomitant]
     Active Substance: ZOLPIDEM TARTRATE
     Indication: Headache
     Dosage: 10 MILLIGRAM, QD
     Route: 065

REACTIONS (4)
  - Device related infection [Recovered/Resolved with Sequelae]
  - Staphylococcal bacteraemia [Recovered/Resolved with Sequelae]
  - Arthritis [Recovered/Resolved]
  - Joint injury [Recovered/Resolved]

NARRATIVE: CASE EVENT DATE: 20150512
